FAERS Safety Report 12601185 (Version 1)
Quarter: 2016Q3

REPORT INFORMATION
  Report Type: Spontaneous
  Country: JP (occurrence: JP)
  Receive Date: 20160728
  Receipt Date: 20160728
  Transmission Date: 20161109
  Serious: Yes (Other)
  Sender: FDA-Public Use
  Company Number: JP-ACTAVIS-2016-14426

PATIENT
  Age: 29 Year
  Sex: Female

DRUGS (4)
  1. PREDNISOLONE. [Concomitant]
     Active Substance: PREDNISOLONE
     Indication: CASTLEMAN^S DISEASE
     Dosage: 100 MG, CYCLICAL (DAY 1 TO 5, 3 CYCLES)
     Route: 065
  2. VINCRISTINE [Concomitant]
     Active Substance: VINCRISTINE
     Indication: CASTLEMAN^S DISEASE
     Dosage: 1.4 MG/M2, CYCLICAL (DAY 1, 3 CYCLES)
     Route: 065
  3. CYCLOPHOSPHAMIDE. [Concomitant]
     Active Substance: CYCLOPHOSPHAMIDE
     Indication: CASTLEMAN^S DISEASE
     Dosage: 750 MG/M2, CYCLICAL (DAY 1, 3 CYCLES)
     Route: 065
  4. DOXORUBICIN (UNKNOWN) [Suspect]
     Active Substance: DOXORUBICIN
     Indication: CASTLEMAN^S DISEASE
     Dosage: 50 MG/M2, CYCLICAL (DAY 1, 3 CYCLES)
     Route: 065

REACTIONS (1)
  - Cardiomyopathy [Unknown]
